APPROVED DRUG PRODUCT: ZERIT
Active Ingredient: STAVUDINE
Strength: 5MG
Dosage Form/Route: CAPSULE;ORAL
Application: N020412 | Product #001
Applicant: BRISTOL MYERS SQUIBB CO
Approved: Jun 24, 1994 | RLD: No | RS: No | Type: DISCN